FAERS Safety Report 25863860 (Version 1)
Quarter: 2025Q3

REPORT INFORMATION
  Report Type: Spontaneous
  Country: US (occurrence: US)
  Receive Date: 20250930
  Receipt Date: 20250930
  Transmission Date: 20251020
  Serious: Yes (Hospitalization)
  Sender: SECURA BIO
  Company Number: US-SECURA BIO, INC.-SECUR-2025-US000010

PATIENT
  Sex: Female

DRUGS (2)
  1. COPIKTRA [Suspect]
     Active Substance: DUVELISIB
     Indication: Peripheral T-cell lymphoma unspecified
     Dosage: 75 MILLIGRAM (3*25 MG), BID
     Route: 048
     Dates: start: 202409
  2. ENTECAVIR [Suspect]
     Active Substance: ENTECAVIR
     Indication: Product used for unknown indication

REACTIONS (1)
  - Pneumonia [Unknown]
